FAERS Safety Report 13184900 (Version 5)
Quarter: 2017Q3

REPORT INFORMATION
  Report Type: Report from Study
  Country: CO (occurrence: CO)
  Receive Date: 20170203
  Receipt Date: 20170828
  Transmission Date: 20171127
  Serious: Yes (Death, Life-Threatening, Hospitalization, Other)
  Sender: FDA-Public Use
  Company Number: CO-AMGEN-COLSL2017015727

PATIENT
  Age: 62 Year
  Sex: Female

DRUGS (3)
  1. ARANESP [Suspect]
     Active Substance: DARBEPOETIN ALFA
     Dosage: 100 MUG, Q2WK
     Route: 058
     Dates: start: 20161126
  2. ARANESP [Suspect]
     Active Substance: DARBEPOETIN ALFA
     Dosage: 100 MUG, Q2WK
     Route: 058
     Dates: start: 20170415, end: 20170415
  3. ARANESP [Suspect]
     Active Substance: DARBEPOETIN ALFA
     Indication: NEPHROGENIC ANAEMIA
     Dosage: 100 MUG, Q2WK
     Route: 058
     Dates: start: 20160917

REACTIONS (6)
  - Myocardial infarction [Fatal]
  - Bronchitis [Not Recovered/Not Resolved]
  - Lung infection [Not Recovered/Not Resolved]
  - Infarction [Recovering/Resolving]
  - Pneumonia [Not Recovered/Not Resolved]
  - Respiratory failure [Not Recovered/Not Resolved]

NARRATIVE: CASE EVENT DATE: 2017
